FAERS Safety Report 4633823-4 (Version None)
Quarter: 2005Q2

REPORT INFORMATION
  Report Type: 
  Country: None (occurrence: None)
  Receive Date: 20050413
  Receipt Date: 20050330
  Transmission Date: 20051028
  Serious: Yes (Hospitalization)
  Sender: FDA-Public Use
  Company Number: 200512630US

PATIENT
  Sex: Male
  Weight: 75.3 kg

DRUGS (6)
  1. DOCETAXEL [Suspect]
     Indication: PROSTATE CANCER
     Route: 042
     Dates: start: 20050317, end: 20050317
  2. KETOCONAZOLE [Suspect]
     Indication: PROSTATE CANCER
     Dosage: DOSE: UNK
  3. TERAZOSIN [Concomitant]
     Dates: start: 20041001
  4. INSULIN [Concomitant]
     Dosage: DOSE: AS DIRECTED
     Dates: start: 19990301
  5. COMPAZINE [Concomitant]
     Route: 048
     Dates: start: 20050201
  6. CITALOPRAM HYDROBROMIDE [Concomitant]
     Dates: start: 20040901

REACTIONS (18)
  - ASTHENIA [None]
  - BLOOD CREATINE PHOSPHOKINASE MB INCREASED [None]
  - BLOOD UREA INCREASED [None]
  - DEHYDRATION [None]
  - FALL [None]
  - HYPERGLYCAEMIA [None]
  - METABOLIC ACIDOSIS [None]
  - MUCOSAL DRYNESS [None]
  - NAUSEA [None]
  - NEUTROPHIL COUNT DECREASED [None]
  - ORTHOSTATIC HYPOTENSION [None]
  - SUPRAVENTRICULAR EXTRASYSTOLES [None]
  - TACHYCARDIA [None]
  - THIRST [None]
  - TREATMENT NONCOMPLIANCE [None]
  - URINE ODOUR ABNORMAL [None]
  - VOMITING [None]
  - WHITE BLOOD CELL COUNT DECREASED [None]
